FAERS Safety Report 8246956-0 (Version None)
Quarter: 2012Q1

REPORT INFORMATION
  Report Type: 
  Country: None (occurrence: None)
  Receive Date: 20120316
  Receipt Date: 20090625
  Transmission Date: 20120608
  Serious: Yes (Other)
  Sender: FDA-Public Use
  Company Number: PHEH2009US06675

PATIENT
  Sex: Female

DRUGS (2)
  1. VERAMYST (FLUTICASONE FUROATE) [Concomitant]
  2. TEKTURNA [Suspect]

REACTIONS (5)
  - ABDOMINAL PAIN UPPER [None]
  - DIARRHOEA [None]
  - OEDEMA PERIPHERAL [None]
  - GASTROINTESTINAL SOUNDS ABNORMAL [None]
  - FLATULENCE [None]
